FAERS Safety Report 4937718-8 (Version None)
Quarter: 2006Q1

REPORT INFORMATION
  Report Type: 
  Country: None (occurrence: None)
  Receive Date: 20060309
  Receipt Date: 20060301
  Transmission Date: 20060701
  Serious: Yes (Other)
  Sender: FDA-Public Use
  Company Number: IT-GILEAD-2006-0009278

PATIENT
  Age: 45 Year
  Sex: Male

DRUGS (3)
  1. VIREAD [Suspect]
     Indication: PSORIASIS
     Route: 048
     Dates: start: 20030101, end: 20040101
  2. STAVUDINE [Concomitant]
     Indication: PSORIASIS
     Dates: start: 20030101, end: 20040101
  3. ENFUVIRTIDE [Concomitant]
     Indication: PSORIASIS
     Dates: start: 20030101, end: 20040101

REACTIONS (1)
  - HEPATIC FUNCTION ABNORMAL [None]
